FAERS Safety Report 9015037 (Version 2)
Quarter: 2013Q1

REPORT INFORMATION
  Report Type: Spontaneous
  Country: BR (occurrence: BR)
  Receive Date: 20130116
  Receipt Date: 20130321
  Transmission Date: 20140127
  Serious: Yes (Hospitalization, Other)
  Sender: FDA-Public Use
  Company Number: BR-ABBOTT-13P-020-1035555-00

PATIENT
  Age: 27 Year
  Sex: Male
  Weight: 110 kg

DRUGS (4)
  1. DEPAKOTE [Suspect]
     Indication: BIPOLAR DISORDER
     Route: 048
     Dates: start: 2011
  2. DEPAKENE [Suspect]
     Indication: PRODUCT USED FOR UNKNOWN INDICATION
     Dates: start: 201302
  3. ESOMEPRAZOLE [Concomitant]
     Indication: GASTRIC DISORDER
  4. ARIPIPRAZOLE [Concomitant]
     Indication: BIPOLAR DISORDER

REACTIONS (6)
  - Obesity [Unknown]
  - Obesity surgery [Recovered/Resolved]
  - Dysphagia [Unknown]
  - Weight decreased [Unknown]
  - Product taste abnormal [Unknown]
  - Wrong technique in drug usage process [Unknown]
